FAERS Safety Report 4657133-4 (Version None)
Quarter: 2005Q2

REPORT INFORMATION
  Report Type: 
  Country: None (occurrence: None)
  Receive Date: 20050506
  Receipt Date: 20050422
  Transmission Date: 20051028
  Serious: Yes (Hospitalization)
  Sender: FDA-Public Use
  Company Number: 2005BI005367

PATIENT
  Age: 56 Year
  Sex: Male

DRUGS (2)
  1. AVONEX [Suspect]
     Indication: MULTIPLE SCLEROSIS
     Dosage: 30 UG; QW; IM
     Route: 030
     Dates: start: 20040304
  2. SOLU-MEDROL [Concomitant]

REACTIONS (4)
  - CONDITION AGGRAVATED [None]
  - DUODENAL PERFORATION [None]
  - MULTIPLE SCLEROSIS [None]
  - PERITONITIS [None]
